FAERS Safety Report 10365358 (Version 1)
Quarter: 2014Q3

REPORT INFORMATION
  Report Type: Spontaneous
  Country: US (occurrence: None)
  Receive Date: 20140805
  Receipt Date: 20140805
  Transmission Date: 20150326
  Serious: Yes (Hospitalization)
  Sender: FDA-Public Use
  Company Number: None

PATIENT
  Age: 41 Year
  Sex: Female
  Weight: 69.1 kg

DRUGS (1)
  1. HUMIRA [Suspect]
     Active Substance: ADALIMUMAB
     Indication: CROHN^S DISEASE
     Dosage: 40MG ONCE A WEEK SUB-Q
     Route: 058
     Dates: start: 20100222

REACTIONS (3)
  - Crohn^s disease [None]
  - Condition aggravated [None]
  - Stress [None]

NARRATIVE: CASE EVENT DATE: 20140801
